FAERS Safety Report 8365057-4 (Version None)
Quarter: 2012Q2

REPORT INFORMATION
  Report Type: 
  Country: None (occurrence: None)
  Receive Date: 20120516
  Receipt Date: 20120504
  Transmission Date: 20120825
  Serious: Yes (Disabling)
  Sender: FDA-Public Use
  Company Number: GB-BRISTOL-MYERS SQUIBB COMPANY-16587602

PATIENT
  Age: 67 Year
  Sex: Female

DRUGS (6)
  1. SOLIFENACIN SUCCINATE [Concomitant]
     Route: 065
  2. IBUPROFEN [Concomitant]
     Route: 065
  3. MITOMYCIN [Suspect]
     Indication: BLADDER CANCER
     Dosage: MITOMYCIN INJ
     Route: 065
     Dates: start: 20111114, end: 20120121
  4. ACETAMINOPHEN [Concomitant]
     Route: 065
  5. OXYBUTYNIN [Concomitant]
     Route: 065
  6. CIPROFLOXACIN [Concomitant]
     Route: 065

REACTIONS (5)
  - RASH [None]
  - URTICARIA [None]
  - URINARY INCONTINENCE [None]
  - POLLAKIURIA [None]
  - HYPERSENSITIVITY [None]
